FAERS Safety Report 12380966 (Version 1)
Quarter: 2016Q2

REPORT INFORMATION
  Report Type: Spontaneous
  Country: CA (occurrence: CA)
  Receive Date: 20160518
  Receipt Date: 20160518
  Transmission Date: 20160815
  Serious: Yes (Disabling)
  Sender: FDA-Public Use
  Company Number: CA-ACTAVIS-2016-10233

PATIENT
  Age: 19 Year
  Sex: Male

DRUGS (4)
  1. OXYCONTIN [Interacting]
     Active Substance: OXYCODONE HYDROCHLORIDE
     Indication: NEURALGIA
     Dosage: 40 MG 1-2 TABLETS TWICE DAILY
     Route: 065
     Dates: start: 200707
  2. NORTRIPTYLINE HYDROCHLORIDE (WATSON LABORATORIES) [Interacting]
     Active Substance: NORTRIPTYLINE HYDROCHLORIDE
     Indication: NEURALGIA
     Dosage: 25 MG, TID
     Route: 065
     Dates: start: 200707
  3. CITALOPRAM [Suspect]
     Active Substance: CITALOPRAM HYDROBROMIDE
     Indication: DEPRESSION
     Dosage: 40 MG, DAILY
     Route: 065
     Dates: start: 200709
  4. MELATONIN [Interacting]
     Active Substance: MELATONIN
     Indication: SLEEP DISORDER
     Dosage: 3 MG, DAILY
     Route: 065
     Dates: end: 200801

REACTIONS (2)
  - Sedation [Recovered/Resolved]
  - Drug interaction [Recovered/Resolved]

NARRATIVE: CASE EVENT DATE: 200711
